FAERS Safety Report 23790214 (Version 5)
Quarter: 2024Q3

REPORT INFORMATION
  Report Type: Spontaneous
  Country: US (occurrence: US)
  Receive Date: 20240426
  Receipt Date: 20240830
  Transmission Date: 20241016
  Serious: No
  Sender: BLUEPRINT MEDICINES
  Company Number: US-Blueprint Medicines Corporation-3254

PATIENT
  Age: 63 Year
  Sex: Male
  Weight: 111.23 kg

DRUGS (4)
  1. AYVAKIT [Suspect]
     Active Substance: AVAPRITINIB
     Indication: Systemic mastocytosis
     Route: 065
     Dates: start: 20240328
  2. AYVAKIT [Suspect]
     Active Substance: AVAPRITINIB
     Route: 065
     Dates: start: 20240328
  3. AYVAKIT [Suspect]
     Active Substance: AVAPRITINIB
     Route: 065
     Dates: start: 20240328
  4. AYVAKIT [Suspect]
     Active Substance: AVAPRITINIB
     Route: 048
     Dates: start: 20240328

REACTIONS (30)
  - Nausea [Unknown]
  - Lacrimation increased [Unknown]
  - Muscle spasms [Unknown]
  - Rash [Unknown]
  - Fatigue [Unknown]
  - Pain in extremity [Unknown]
  - Peripheral swelling [Recovering/Resolving]
  - Dry skin [Unknown]
  - Feeling of despair [Unknown]
  - Emotional distress [Unknown]
  - Burning sensation [Unknown]
  - Skin discolouration [Unknown]
  - Sleep disorder [Unknown]
  - Middle insomnia [Unknown]
  - Haemoglobin decreased [Unknown]
  - White blood cell count decreased [Unknown]
  - Fluid retention [Unknown]
  - Limb discomfort [Unknown]
  - Weight decreased [Unknown]
  - Skin fissures [Recovered/Resolved]
  - Gait disturbance [Unknown]
  - Eye swelling [Unknown]
  - Blister [Not Recovered/Not Resolved]
  - Paranoia [Unknown]
  - Pain in extremity [Unknown]
  - Photosensitivity reaction [Unknown]
  - Skin tightness [Unknown]
  - Hypoaesthesia [Recovered/Resolved]
  - Paraesthesia [Unknown]
  - Dysuria [Unknown]

NARRATIVE: CASE EVENT DATE: 20240701
